FAERS Safety Report 9366874 (Version 1)
Quarter: 2013Q2

REPORT INFORMATION
  Report Type: Spontaneous
  Country: US (occurrence: US)
  Receive Date: 20130625
  Receipt Date: 20130625
  Transmission Date: 20140414
  Serious: Yes (Hospitalization)
  Sender: FDA-Public Use
  Company Number: US-GLAXOSMITHKLINE-A1027835A

PATIENT
  Age: 50 Year
  Sex: Female

DRUGS (5)
  1. ADVAIR [Suspect]
     Indication: ASTHMA
     Dosage: 1PUFF TWICE PER DAY
     Route: 055
  2. ADVAIR [Suspect]
     Indication: ASTHMA
     Dosage: 2SPR TWICE PER DAY
     Route: 055
     Dates: start: 201204
  3. FLOVENT [Suspect]
     Indication: ASTHMA
     Route: 065
  4. KLONOPIN [Concomitant]
  5. ALLERGY MEDICATION [Concomitant]

REACTIONS (12)
  - Adrenal insufficiency [Not Recovered/Not Resolved]
  - Anxiety [Unknown]
  - Tremor [Unknown]
  - Agitation [Unknown]
  - Emotional disorder [Unknown]
  - Weight increased [Unknown]
  - Irritability [Unknown]
  - Weight decreased [Unknown]
  - Insomnia [Unknown]
  - Malaise [Unknown]
  - Drug ineffective [Unknown]
  - Underdose [Unknown]
